FAERS Safety Report 20561144 (Version 2)
Quarter: 2022Q1

REPORT INFORMATION
  Report Type: Spontaneous
  Country: US (occurrence: US)
  Receive Date: 20220307
  Receipt Date: 20220317
  Transmission Date: 20220424
  Serious: No
  Sender: FDA-Public Use
  Company Number: US-PFIZER INC-202200358568

PATIENT
  Age: 25 Year
  Sex: Female
  Weight: 72.109 kg

DRUGS (9)
  1. PAXLOVID [Suspect]
     Active Substance: NIRMATRELVIR\RITONAVIR
     Indication: COVID-19 prophylaxis
     Dosage: 3 PILLS TWICE A DAY
     Dates: start: 20220225, end: 20220302
  2. ALDACTONE [Concomitant]
     Active Substance: SPIRONOLACTONE
     Dosage: UNK
     Dates: start: 201708
  3. ASTEPRO [Concomitant]
     Active Substance: AZELASTINE HYDROCHLORIDE
     Dosage: UNK
     Dates: start: 20210818
  4. MELATONIN [Concomitant]
     Active Substance: MELATONIN
     Indication: Somnolence
     Dosage: 5 MG, 1X/DAY
     Dates: start: 201901
  5. XYZAL ALLERGY 24HR [Concomitant]
     Active Substance: LEVOCETIRIZINE DIHYDROCHLORIDE
     Dosage: UNK
     Dates: start: 20210818
  6. LEVOCETIRIZINE [Concomitant]
     Active Substance: LEVOCETIRIZINE
     Dosage: UNK, (STARTED 48 HOURS AFTER STOPPED PAXLOVID)
     Dates: start: 20220304
  7. AZELASTINE [Concomitant]
     Active Substance: AZELASTINE
     Dosage: STOPPED WHEN I HAD COVID DUE TO DRUG INTERACTIONS
     Dates: start: 202112
  8. AZELASTINE [Concomitant]
     Active Substance: AZELASTINE
     Dosage: STARTED BACK 4MAR2022
     Dates: start: 20220304
  9. SPIRONOLACTONE [Concomitant]
     Active Substance: SPIRONOLACTONE
     Indication: Acne
     Dosage: 50 MG, 2X/DAY

REACTIONS (5)
  - Off label use [Unknown]
  - Taste disorder [Recovered/Resolved]
  - Nausea [Recovered/Resolved]
  - Muscle spasms [Recovered/Resolved]
  - Dehydration [Recovered/Resolved]

NARRATIVE: CASE EVENT DATE: 20220225
